FAERS Safety Report 9715677 (Version 1)
Quarter: 2013Q4

REPORT INFORMATION
  Report Type: Spontaneous
  Country: None (occurrence: NL)
  Receive Date: 20131127
  Receipt Date: 20131127
  Transmission Date: 20140711
  Serious: Yes (Other)
  Sender: FDA-Public Use
  Company Number: NL-ACCORD-020443

PATIENT
  Age: 22 Year
  Sex: Female

DRUGS (3)
  1. ETOPOSIDE [Suspect]
     Indication: GERM CELL CANCER
     Dosage: 4 CYCLES.
  2. CISPLATIN [Suspect]
     Indication: GERM CELL CANCER
     Dosage: 4 CYCLES.
  3. GRANULOCYTE COLONY-STIMULATING FACTOR NOS [Concomitant]
     Indication: PRODUCT USED FOR UNKNOWN INDICATION

REACTIONS (1)
  - Herpes zoster [Unknown]
